FAERS Safety Report 5958732-X (Version None)
Quarter: 2008Q4

REPORT INFORMATION
  Report Type: 
  Country: None (occurrence: None)
  Receive Date: 20081119
  Receipt Date: 20081111
  Transmission Date: 20090506
  Serious: No
  Sender: FDA-Public Use
  Company Number: US-B.I. PHARMACEUTICALS,INC./RIDGEFIELD-2008-BP-17122BP

PATIENT
  Sex: Female

DRUGS (4)
  1. SPIRIVA [Suspect]
     Indication: CHRONIC OBSTRUCTIVE PULMONARY DISEASE
     Dates: start: 20050101
  2. ALBUTEROL SULFATE [Concomitant]
     Indication: DYSPNOEA
  3. PULMICORT-100 [Concomitant]
     Indication: DYSPNOEA
     Dosage: 360MCG
  4. CHANTIX [Concomitant]
     Indication: EX-TOBACCO USER

REACTIONS (2)
  - DRUG INEFFECTIVE [None]
  - DRY MOUTH [None]
